FAERS Safety Report 9675017 (Version 1)
Quarter: 2013Q4

REPORT INFORMATION
  Report Type: Spontaneous
  Country: US (occurrence: None)
  Receive Date: 20131106
  Receipt Date: 20131106
  Transmission Date: 20140711
  Serious: No
  Sender: FDA-Public Use
  Company Number: None

PATIENT
  Age: 58 Year
  Sex: Female

DRUGS (3)
  1. XELJANZ [Suspect]
     Indication: RHEUMATOID ARTHRITIS
     Dosage: 1 PILL, BID, ORAL
     Route: 048
  2. METHOTREXATE [Concomitant]
  3. LEVOTHYROXINE [Concomitant]

REACTIONS (1)
  - Sinusitis [None]
